FAERS Safety Report 7416786-8 (Version None)
Quarter: 2011Q1

REPORT INFORMATION
  Report Type: 
  Country: None (occurrence: None)
  Receive Date: 20110302
  Receipt Date: 20101103
  Transmission Date: 20110831
  Serious: No
  Sender: FDA-Public Use
  Company Number: 019373

PATIENT
  Sex: Male

DRUGS (5)
  1. CIMZIA [Suspect]
     Indication: CROHN'S DISEASE
     Dosage: 400 MG 1X/28 DAYS SUBCUTANEOUS, 400 MG 1X/2 WEEKS SUBCUTANEOUS, 400 MG 1X/2 WEEKS SUBCUTANEOUS
     Route: 058
     Dates: start: 20101020
  2. CIMZIA [Suspect]
     Indication: CROHN'S DISEASE
     Dosage: 400 MG 1X/28 DAYS SUBCUTANEOUS, 400 MG 1X/2 WEEKS SUBCUTANEOUS, 400 MG 1X/2 WEEKS SUBCUTANEOUS
     Route: 058
     Dates: start: 20101102
  3. CIMZIA [Suspect]
     Indication: CROHN'S DISEASE
     Dosage: 400 MG 1X/28 DAYS SUBCUTANEOUS, 400 MG 1X/2 WEEKS SUBCUTANEOUS, 400 MG 1X/2 WEEKS SUBCUTANEOUS
     Route: 058
     Dates: start: 20090527
  4. CIMZIA [Suspect]
  5. CIMZIA [Suspect]

REACTIONS (3)
  - TONSILLECTOMY [None]
  - MUSCLE SPASMS [None]
  - INJECTION SITE HAEMORRHAGE [None]
